FAERS Safety Report 11290839 (Version 4)
Quarter: 2015Q4

REPORT INFORMATION
  Report Type: Spontaneous
  Country: EC (occurrence: None)
  Receive Date: 20150720
  Receipt Date: 20151009
  Transmission Date: 20160304
  Serious: Yes (Other)
  Sender: FDA-Public Use
  Company Number: ADR-2015-01355

PATIENT
  Age: 20 Year
  Sex: Male

DRUGS (1)
  1. BACLOFEN INTRATHECAL 500 MCG/ML [Suspect]
     Active Substance: BACLOFEN

REACTIONS (8)
  - Insomnia [None]
  - Dyskinesia [None]
  - Muscle spasticity [None]
  - Depression [None]
  - Performance status decreased [None]
  - No therapeutic response [None]
  - Paraesthesia [None]
  - Unevaluable event [None]
